FAERS Safety Report 7310300-3 (Version None)
Quarter: 2011Q1

REPORT INFORMATION
  Report Type: 
  Country: None (occurrence: None)
  Receive Date: 20110224
  Receipt Date: 20110128
  Transmission Date: 20110831
  Serious: No
  Sender: FDA-Public Use
  Company Number: US-B.I. PHARMACEUTICALS,INC./RIDGEFIELD-2010-BP-15113BP

PATIENT
  Sex: Female

DRUGS (9)
  1. LEXAPRO [Concomitant]
     Indication: DEPRESSION
     Dosage: 20 MG
     Route: 048
  2. NEXIUM [Concomitant]
     Indication: GASTROOESOPHAGEAL REFLUX DISEASE
     Dosage: 40 MG
     Route: 048
  3. TEGRETOL [Concomitant]
     Indication: TRIGEMINAL NEURALGIA
     Dosage: 800 MG
     Route: 048
  4. ATENOLOL [Concomitant]
     Indication: HYPERTENSION
     Dosage: 25 MG
     Route: 048
  5. COLESTID [Concomitant]
     Indication: PROPHYLAXIS
     Dosage: 1 G
     Route: 048
  6. ATROVENT HFA [Suspect]
     Indication: EMPHYSEMA
     Dosage: 8 PUF
     Route: 055
     Dates: start: 20091201
  7. ASPIRIN [Concomitant]
  8. LOTRIL [Concomitant]
     Indication: HYPERTENSION
     Route: 048
  9. XANAX [Concomitant]
     Indication: INSOMNIA
     Dosage: 2 MG
     Route: 048

REACTIONS (2)
  - CHEST DISCOMFORT [None]
  - DRY MOUTH [None]
